FAERS Safety Report 5898642-X (Version None)
Quarter: 2008Q3

REPORT INFORMATION
  Report Type: 
  Country: None (occurrence: None)
  Receive Date: 20080925
  Receipt Date: 20080312
  Transmission Date: 20090109
  Serious: No
  Sender: FDA-Public Use
  Company Number: A0714954A

PATIENT
  Age: 31 Year
  Sex: Female

DRUGS (4)
  1. WELLBUTRIN XL [Suspect]
     Indication: DEPRESSION
     Dosage: 150MG PER DAY
     Route: 048
     Dates: start: 20080201
  2. CYMBALTA [Suspect]
  3. MINOCYCLINE HCL [Concomitant]
  4. UNKNOWN MEDICATION [Concomitant]

REACTIONS (4)
  - ARTHRALGIA [None]
  - PAIN OF SKIN [None]
  - PRURITUS [None]
  - URTICARIA [None]
